FAERS Safety Report 9167066 (Version 1)
Quarter: 2013Q1

REPORT INFORMATION
  Report Type: Report from Study
  Country: BR (occurrence: BR)
  Receive Date: 20130318
  Receipt Date: 20130318
  Transmission Date: 20140127
  Serious: Yes (Other)
  Sender: FDA-Public Use
  Company Number: BR-009507513-1302BRA013086

PATIENT
  Age: 1 Day
  Sex: Female
  Weight: 2.88 kg

DRUGS (8)
  1. STOCRIN [Suspect]
     Dosage: UNK UNK, QD
     Route: 064
     Dates: end: 20120611
  2. TRUVADA [Suspect]
     Dosage: UNK DF, UNK
     Route: 064
     Dates: start: 20120521
  3. LAMIVUDINE (+) ZIDOVUDINE [Suspect]
     Dosage: UNK
     Route: 064
     Dates: end: 20120521
  4. LAMIVUDINE [Suspect]
     Dosage: UNK
     Route: 064
     Dates: start: 20120512
  5. LEXIVA [Suspect]
     Dosage: UNK
     Route: 064
     Dates: start: 20120711, end: 20120803
  6. ZIAGEN [Suspect]
     Dosage: UNK
     Route: 064
     Dates: start: 20120803
  7. ISENTRESS [Suspect]
     Dosage: UNK
     Route: 064
     Dates: start: 20120803
  8. RETROVIR [Suspect]
     Dosage: UNK
     Route: 064
     Dates: start: 20121128, end: 20121128

REACTIONS (2)
  - Genital prolapse [Unknown]
  - Muscle disorder [Unknown]
